FAERS Safety Report 10229705 (Version 1)
Quarter: 2014Q2

REPORT INFORMATION
  Report Type: Spontaneous
  Country: AR (occurrence: AR)
  Receive Date: 20140611
  Receipt Date: 20140611
  Transmission Date: 20141212
  Serious: Yes (Hospitalization, Other)
  Sender: FDA-Public Use
  Company Number: PHHY2014AR071162

PATIENT
  Sex: Female

DRUGS (2)
  1. EXELON PATCH [Suspect]
     Indication: DEMENTIA ALZHEIMER^S TYPE
     Dosage: 9.5 MG, DAILY
     Route: 062
  2. EXELON PATCH [Suspect]
     Dosage: 2 DF, DAILY (2 PATCHES OF 5 CM (4.6 MG))
     Route: 062

REACTIONS (5)
  - Pneumonia [Recovered/Resolved]
  - Dysstasia [Unknown]
  - Movement disorder [Not Recovered/Not Resolved]
  - Drug administration error [Unknown]
  - Urinary tract infection [Recovered/Resolved]
